FAERS Safety Report 7032484-7 (Version None)
Quarter: 2010Q4

REPORT INFORMATION
  Report Type: 
  Country: None (occurrence: None)
  Receive Date: 20101007
  Receipt Date: 20100928
  Transmission Date: 20110411
  Serious: Yes (Life-Threatening, Hospitalization, Other)
  Sender: FDA-Public Use
  Company Number: MX-JNJFOC-20101001197

PATIENT
  Age: 15 Year
  Sex: Male

DRUGS (3)
  1. TRAMADOL HYDROCHLORIDE [Suspect]
     Indication: OSTEOMA
     Route: 048
  2. TRAMADOL HYDROCHLORIDE [Suspect]
     Route: 048
  3. NAPROXEN [Interacting]
     Indication: OSTEOMA
     Route: 048

REACTIONS (6)
  - DRUG INTERACTION [None]
  - HALLUCINATION, AUDITORY [None]
  - OVERDOSE [None]
  - PARANOIA [None]
  - PSYCHOTIC DISORDER [None]
  - STATUS EPILEPTICUS [None]
